FAERS Safety Report 26189736 (Version 1)
Quarter: 2025Q4

REPORT INFORMATION
  Report Type: Spontaneous
  Country: EU (occurrence: EU)
  Receive Date: 20251223
  Receipt Date: 20251223
  Transmission Date: 20260117
  Serious: Yes (Other)
  Sender: GE HEALTHCARE
  Company Number: None

PATIENT
  Age: 77 Year
  Sex: Female
  Weight: 57 kg

DRUGS (1)
  1. OMNIPAQUE [Suspect]
     Active Substance: IOHEXOL
     Indication: Diagnostic procedure
     Dosage: 95 ML, TOTAL
     Route: 042
     Dates: start: 20211106, end: 20211106

REACTIONS (2)
  - Dysphagia [Recovered/Resolved]
  - Oesophageal oedema [Recovered/Resolved]

NARRATIVE: CASE EVENT DATE: 20211106
